FAERS Safety Report 4309245-2 (Version None)
Quarter: 2004Q1

REPORT INFORMATION
  Report Type: 
  Country: None (occurrence: None)
  Receive Date: 20040227
  Receipt Date: 20040219
  Transmission Date: 20041129
  Serious: Yes (Hospitalization, Other)
  Sender: FDA-Public Use
  Company Number: FRWYE592819FEB04

PATIENT
  Age: 73 Year
  Sex: Female

DRUGS (6)
  1. BISOPROLOL FUMARATE [Suspect]
     Indication: ESSENTIAL HYPERTENSION
     Dosage: 10 MG 1 X PER 1 DAY
     Route: 048
     Dates: end: 20031028
  2. ALDACTONE [Suspect]
     Indication: ESSENTIAL HYPERTENSION
     Dosage: 25 MG 1 X PER 1 DAY
     Route: 048
     Dates: end: 20031028
  3. ATACAND [Suspect]
     Indication: ESSENTIAL HYPERTENSION
     Dosage: 1 DOSE 1 X PER 1 DAY
     Route: 048
     Dates: end: 20031028
  4. GLUCOPHAGE [Suspect]
     Indication: DIABETES MELLITUS
     Dosage: 1 G 1 X PER 1 DAY
     Dates: end: 20031028
  5. VOLTAREN [Suspect]
     Dosage: 50 MG 2 X PER 1 DAY
  6. IMOVANE (ZOPICLONE) [Concomitant]

REACTIONS (7)
  - BLOOD PRESSURE DIASTOLIC DECREASED [None]
  - BLOOD PRESSURE SYSTOLIC INCREASED [None]
  - CONFUSIONAL STATE [None]
  - DIALYSIS [None]
  - NAUSEA [None]
  - RENAL FAILURE ACUTE [None]
  - VOMITING [None]
